FAERS Safety Report 9331588 (Version 1)
Quarter: 2013Q2

REPORT INFORMATION
  Report Type: Spontaneous
  Country: CN (occurrence: CN)
  Receive Date: 20130605
  Receipt Date: 20130605
  Transmission Date: 20140414
  Serious: Yes (Other)
  Sender: FDA-Public Use
  Company Number: CN-ASTRAZENECA-2013SE39976

PATIENT
  Age: 24854 Day
  Sex: Male

DRUGS (3)
  1. FELODIPINE [Suspect]
     Indication: HYPERTENSION
     Route: 048
     Dates: start: 20120624, end: 20120627
  2. NIMODIPINE [Suspect]
     Indication: HYPERTENSION
     Route: 048
     Dates: start: 20120624, end: 20120627
  3. FLUNARIZINE HYDROCHLORIDE [Concomitant]
     Indication: CEREBRAL HYPOPERFUSION
     Route: 048
     Dates: start: 20120624, end: 20120627

REACTIONS (1)
  - Urinary retention [Recovering/Resolving]
